FAERS Safety Report 17653045 (Version 1)
Quarter: 2020Q2

REPORT INFORMATION
  Report Type: Spontaneous
  Country: DE (occurrence: DE)
  Receive Date: 20200409
  Receipt Date: 20200409
  Transmission Date: 20200713
  Serious: Yes (Other)
  Sender: FDA-Public Use
  Company Number: NVSC2020DE095188

PATIENT
  Age: 74 Year
  Sex: Female

DRUGS (2)
  1. PACLITAXEL. [Suspect]
     Active Substance: PACLITAXEL
     Indication: FALLOPIAN TUBE CANCER
     Dosage: 140 MG/M2, CYCLIC
     Route: 065
  2. CARBOPLATIN. [Suspect]
     Active Substance: CARBOPLATIN
     Indication: FALLOPIAN TUBE CANCER
     Dosage: 125 MG/M2, CYCLIC
     Route: 065

REACTIONS (4)
  - Anaemia [Unknown]
  - Product use in unapproved indication [Unknown]
  - Disease recurrence [Unknown]
  - Thrombocytopenia [Unknown]
